FAERS Safety Report 4654610-7 (Version None)
Quarter: 2005Q2

REPORT INFORMATION
  Report Type: 
  Country: None (occurrence: None)
  Receive Date: 20050404
  Receipt Date: 20041203
  Transmission Date: 20051028
  Serious: No
  Sender: FDA-Public Use
  Company Number: USA041285230

PATIENT
  Age: 40 Year
  Sex: Male

DRUGS (4)
  1. CYMBALTA [Suspect]
     Indication: MAJOR DEPRESSION
     Dosage: 30 MG
  2. WELLBUTRIN [Concomitant]
  3. RISPERDAL [Concomitant]
  4. TRANXENE [Concomitant]

REACTIONS (4)
  - DIARRHOEA [None]
  - NAUSEA [None]
  - TACHYCARDIA [None]
  - TREMOR [None]
